FAERS Safety Report 12367745 (Version 1)
Quarter: 2016Q2

REPORT INFORMATION
  Report Type: Spontaneous
  Country: US (occurrence: US)
  Receive Date: 20160513
  Receipt Date: 20160513
  Transmission Date: 20160815
  Serious: No
  Sender: FDA-Public Use
  Company Number: US-JNJFOC-20160423504

PATIENT
  Age: 60 Year
  Sex: Female
  Weight: 45.36 kg

DRUGS (1)
  1. SUDAFED [Suspect]
     Active Substance: PSEUDOEPHEDRINE HYDROCHLORIDE
     Indication: PRODUCT USED FOR UNKNOWN INDICATION
     Dosage: 4 TABLETS
     Route: 048

REACTIONS (1)
  - Inappropriate schedule of drug administration [Unknown]
